FAERS Safety Report 15258725 (Version 2)
Quarter: 2021Q4

REPORT INFORMATION
  Report Type: Other
  Country: US (occurrence: US)
  Receive Date: 20180809
  Receipt Date: 20211012
  Transmission Date: 20220303
  Serious: No
  Sender: FDA-Public Use
  Company Number: US-ROCHE-2162339

PATIENT
  Age: 71 Year
  Sex: Female

DRUGS (2)
  1. OCREVUS [Suspect]
     Active Substance: OCRELIZUMAB
     Indication: Primary progressive multiple sclerosis
     Route: 042
  2. OCREVUS [Suspect]
     Active Substance: OCRELIZUMAB
     Dosage: DAY 1 AND 15 300 MG AND THEN 600 MG EVERY 6 MONTHS?WAS TO HAVE 3RD OCREVUS ON 12-JUL-2018;
     Route: 042
     Dates: start: 201706

REACTIONS (5)
  - Illness [Unknown]
  - Chalazion [Not Recovered/Not Resolved]
  - Inflammation [Recovering/Resolving]
  - Eye infection [Not Recovered/Not Resolved]
  - Mass [Recovering/Resolving]

NARRATIVE: CASE EVENT DATE: 20180712
